FAERS Safety Report 4895379-0 (Version None)
Quarter: 2006Q1

REPORT INFORMATION
  Report Type: 
  Country: None (occurrence: None)
  Receive Date: 20060130
  Receipt Date: 20060123
  Transmission Date: 20060701
  Serious: Yes (Hospitalization, Other)
  Sender: FDA-Public Use
  Company Number: US-MERCK-0601USA02777

PATIENT
  Age: 71 Year
  Sex: Male
  Weight: 70 kg

DRUGS (3)
  1. VIOXX [Suspect]
     Indication: ARTHRITIS
     Route: 048
     Dates: start: 19990828, end: 20010701
  2. VIOXX [Suspect]
     Route: 048
     Dates: start: 19990828, end: 20010701
  3. CATAPRES-TTS-1 [Concomitant]
     Route: 065

REACTIONS (15)
  - ANAEMIA [None]
  - ARTERIOSCLEROSIS [None]
  - CAROTID ARTERY STENOSIS [None]
  - CEREBROVASCULAR ACCIDENT [None]
  - CHEST PAIN [None]
  - GAMMOPATHY [None]
  - HYPERCOAGULATION [None]
  - HYPERKALAEMIA [None]
  - IMMUNOGLOBULINS INCREASED [None]
  - PALPITATIONS [None]
  - PITTING OEDEMA [None]
  - PROTEINURIA [None]
  - RENAL FAILURE [None]
  - RENAL FAILURE CHRONIC [None]
  - WEIGHT DECREASED [None]
